FAERS Safety Report 4970170-5 (Version None)
Quarter: 2006Q2

REPORT INFORMATION
  Report Type: 
  Country: None (occurrence: None)
  Receive Date: 20060412
  Receipt Date: 20060130
  Transmission Date: 20061013
  Serious: Yes (Other)
  Sender: FDA-Public Use
  Company Number: PHBS2006JP01778

PATIENT
  Age: 54 Year
  Sex: Female

DRUGS (4)
  1. BISPHONAL [Suspect]
     Route: 065
     Dates: start: 20040511, end: 20051005
  2. BISPHOSPHONATES [Suspect]
     Dates: start: 20020319, end: 20040413
  3. XELODA [Concomitant]
     Route: 048
  4. AREDIA [Suspect]
     Indication: METASTASES TO BONE
     Dosage: UNK, UNK
     Route: 042
     Dates: start: 20041102, end: 20051008

REACTIONS (8)
  - BACK PAIN [None]
  - BONE DISORDER [None]
  - LYMPHADENOPATHY [None]
  - NAUSEA [None]
  - NEOPLASM RECURRENCE [None]
  - OSTEONECROSIS [None]
  - SWELLING [None]
  - TOOTH FRACTURE [None]
